FAERS Safety Report 9295102 (Version 1)
Quarter: 2013Q1

REPORT INFORMATION
  Report Type: Spontaneous
  Country: US (occurrence: None)
  Receive Date: 20121227
  Receipt Date: 20121227
  Transmission Date: 20140127
  Serious: No
  Sender: FDA-Public Use
  Company Number: PHEH2012US021808

PATIENT
  Sex: Female
  Weight: 47.2 kg

DRUGS (5)
  1. AFINITOR [Suspect]
     Indication: BREAST CANCER METASTATIC
     Route: 048
  2. ZOFRAN (ONDANSETRON HYDROCHLORIDE) [Concomitant]
  3. METOCLOPRAM (METOCLOPRAMIDE HYDROCHLORIDE) [Concomitant]
  4. PROTONIX (PANTOPRAZOLE SODIUM SESQUIHYDRATE) [Concomitant]
  5. MEGACE (MEGESTROL ACETATE) [Concomitant]

REACTIONS (1)
  - Insomnia [None]
